FAERS Safety Report 7417948-6 (Version None)
Quarter: 2011Q2

REPORT INFORMATION
  Report Type: 
  Country: None (occurrence: None)
  Receive Date: 20110415
  Receipt Date: 20110412
  Transmission Date: 20111010
  Serious: Yes (Death)
  Sender: FDA-Public Use
  Company Number: CO-PFIZER INC-2011080809

PATIENT
  Age: 73 Year
  Sex: Male

DRUGS (4)
  1. LIPITOR [Suspect]
     Indication: DYSLIPIDAEMIA
     Dosage: 10 MG, 1X/DAY
     Dates: start: 20060601
  2. LOSARTAN [Concomitant]
     Dosage: UNK
  3. NIFEDIPINE [Concomitant]
     Dosage: 30 MG, 1X/DAY
  4. INSULIN ZINC SUSPENSION [Concomitant]
     Dosage: 20 IU, 2X/DAY

REACTIONS (1)
  - DEATH [None]
